FAERS Safety Report 5818198-7 (Version None)
Quarter: 2008Q3

REPORT INFORMATION
  Report Type: 
  Country: None (occurrence: None)
  Receive Date: 20080716
  Receipt Date: 20080704
  Transmission Date: 20090109
  Serious: Yes (Other)
  Sender: FDA-Public Use
  Company Number: 2008AL007973

PATIENT
  Age: 33 Year
  Sex: Female

DRUGS (4)
  1. DIAZEPAM TAB [Suspect]
     Indication: AGITATION
     Dosage: 5 MG; TID;
     Dates: start: 20080513, end: 20080516
  2. CLOZAPINE [Concomitant]
  3. ARIPIPRAZOLE [Concomitant]
  4. PROPRANOLOL [Concomitant]

REACTIONS (5)
  - DISEASE RECURRENCE [None]
  - HYPOTENSION [None]
  - MALAISE [None]
  - PSYCHOTIC DISORDER [None]
  - SUPRAVENTRICULAR TACHYCARDIA [None]
